FAERS Safety Report 5058964-1 (Version None)
Quarter: 2006Q3

REPORT INFORMATION
  Report Type: 
  Country: None (occurrence: None)
  Receive Date: 20060721
  Receipt Date: 20060711
  Transmission Date: 20061208
  Serious: Yes (Death)
  Sender: FDA-Public Use
  Company Number: JP-SANOFI-SYNTHELABO-A01200605590

PATIENT
  Age: 58 Year
  Sex: Male

DRUGS (3)
  1. LEUCOVORIN CALCIUM [Suspect]
     Dosage: UNK
     Route: 042
     Dates: start: 20060615, end: 20060616
  2. FLUOROURACIL [Suspect]
     Dosage: 400MG/M2 IN BOLUS THEN 600MG/M2 AS CONTINOUS INFUSION ON DAYS 1 AND 2 UNK
     Route: 042
     Dates: start: 20060615, end: 20060616
  3. OXALIPLATIN [Suspect]
     Dosage: UNK
     Route: 042
     Dates: start: 20060615, end: 20060615

REACTIONS (1)
  - PULMONARY OEDEMA [None]
